FAERS Safety Report 8831260 (Version 1)
Quarter: 2012Q4

REPORT INFORMATION
  Report Type: 
  Country: US (occurrence: US)
  Receive Date: 20121008
  Receipt Date: 20121008
  Transmission Date: 20130627
  Serious: No
  Sender: FDA-Public Use
  Company Number: US-VERTEX PHARMACEUTICAL INC.-2012-021419

PATIENT
  Age: 58 Year
  Sex: Female
  Weight: 58.96 kg

DRUGS (6)
  1. INCIVEK [Suspect]
     Indication: HEPATITIS C
     Dosage: 2 tabs 7-9h
     Route: 048
     Dates: start: 20120713
  2. RIBAVIRIN [Suspect]
     Indication: HEPATITIS C
     Dosage: 3 pills in am 2 pills in pm
     Route: 048
     Dates: start: 20120713
  3. PEGINTRON                          /01543001/ [Suspect]
     Indication: HEPATITIS C
     Dosage: 120 ?g, weekly
     Route: 058
     Dates: start: 20120713
  4. MED FOR GOUT [Concomitant]
     Indication: GOUT
  5. MED FOR THYROID [Concomitant]
     Indication: HYPOTHYROIDISM
  6. MED FOR HYPERTENSION [Concomitant]
     Indication: HYPERTENSION

REACTIONS (4)
  - Headache [Not Recovered/Not Resolved]
  - Chills [Not Recovered/Not Resolved]
  - Nasopharyngitis [Not Recovered/Not Resolved]
  - Pain [Not Recovered/Not Resolved]
